FAERS Safety Report 6674123-0 (Version None)
Quarter: 2010Q2

REPORT INFORMATION
  Report Type: 
  Country: None (occurrence: None)
  Receive Date: 20100409
  Receipt Date: 20100330
  Transmission Date: 20101027
  Serious: Yes (Hospitalization)
  Sender: FDA-Public Use
  Company Number: JP-BRISTOL-MYERS SQUIBB COMPANY-14978852

PATIENT
  Age: 56 Year
  Sex: Male
  Weight: 59 kg

DRUGS (6)
  1. ABILIFY [Suspect]
     Indication: SCHIZOPHRENIA
     Route: 048
     Dates: start: 20060906, end: 20060918
  2. SERENACE [Suspect]
     Indication: SCHIZOPHRENIA
     Dosage: UNKNOWN-05SEP06, 2MG T.I.D FROM 06SEP06 - 18SEP06
     Route: 048
     Dates: end: 20060918
  3. ARTANE [Concomitant]
     Dosage: TABS
     Dates: start: 20060906, end: 20060918
  4. LORAZEPAM [Concomitant]
     Dosage: TABS
     Dates: start: 20060906
  5. HALCION [Concomitant]
     Dosage: TABS
     Dates: end: 20060918
  6. HIRNAMIN [Concomitant]
     Dosage: TABS

REACTIONS (1)
  - WATER INTOXICATION [None]
